FAERS Safety Report 18941975 (Version 6)
Quarter: 2021Q2

REPORT INFORMATION
  Report Type: Report from Study
  Country: CA (occurrence: CA)
  Receive Date: 20210225
  Receipt Date: 20210625
  Transmission Date: 20210717
  Serious: Yes (Other)
  Sender: FDA-Public Use
  Company Number: CA-TAKEDA-CA202013216

PATIENT
  Age: 6 Year
  Sex: Male
  Weight: 27 kg

DRUGS (6)
  1. IDURSULFASE [Suspect]
     Active Substance: IDURSULFASE
     Dosage: 12 MILLIGRAM, 1/WEEK
     Route: 042
     Dates: start: 20170621
  2. DEXEDRINE [Concomitant]
     Active Substance: DEXTROAMPHETAMINE SULFATE
     Indication: ATTENTION DEFICIT HYPERACTIVITY DISORDER
     Dosage: 5 MILLIGRAM
     Route: 065
  3. RISPERIDONA [Concomitant]
     Active Substance: RISPERIDONE
     Dosage: 0.5 MILLIGRAM
     Route: 065
  4. IDURSULFASE [Suspect]
     Active Substance: IDURSULFASE
     Indication: MUCOPOLYSACCHARIDOSIS II
     Dosage: 12 MILLIGRAM, 1/WEEK
     Route: 042
     Dates: start: 20170621
  5. IDURSULFASE [Suspect]
     Active Substance: IDURSULFASE
     Dosage: 12 MILLIGRAM, 1/WEEK
     Route: 042
     Dates: start: 20170621
  6. IDURSULFASE [Suspect]
     Active Substance: IDURSULFASE
     Dosage: 12 MILLIGRAM, 1/WEEK
     Route: 042
     Dates: start: 20170621

REACTIONS (18)
  - Pain in extremity [Unknown]
  - Administration site discolouration [Unknown]
  - Blood prolactin increased [Unknown]
  - Product dose omission issue [Unknown]
  - Patient uncooperative [Unknown]
  - Unevaluable event [Unknown]
  - Movement disorder [Unknown]
  - Erythema [Unknown]
  - Blood pressure increased [Unknown]
  - Respiratory rate decreased [Unknown]
  - Agitation [Unknown]
  - Heart rate increased [Unknown]
  - Poor venous access [Unknown]
  - Infusion related reaction [Unknown]
  - Pyrexia [Unknown]
  - Screaming [Unknown]
  - Patient restraint [Unknown]
  - Weight increased [Unknown]

NARRATIVE: CASE EVENT DATE: 20200403
